FAERS Safety Report 15186552 (Version 1)
Quarter: 2018Q3

REPORT INFORMATION
  Report Type: Report from Study
  Country: US (occurrence: US)
  Receive Date: 20180723
  Receipt Date: 20180723
  Transmission Date: 20181010
  Serious: Yes (Hospitalization)
  Sender: FDA-Public Use
  Company Number: US-EXELIXIS-CABO-18013153

PATIENT
  Age: 62 Year
  Sex: Female

DRUGS (21)
  1. CABOMETYX [Suspect]
     Active Substance: CABOZANTINIB S-MALATE
     Indication: RENAL CANCER
     Dosage: 40 MG, QD
     Route: 048
     Dates: start: 20180122
  2. MACRODANTIN [Concomitant]
     Active Substance: NITROFURANTOIN
  3. CLOTRIMAZOLE. [Concomitant]
     Active Substance: CLOTRIMAZOLE
  4. ONDANSETRON [Concomitant]
     Active Substance: ONDANSETRON
  5. ZINC. [Concomitant]
     Active Substance: ZINC
  6. MERREM [Concomitant]
     Active Substance: MEROPENEM
  7. DUONEB [Concomitant]
     Active Substance: ALBUTEROL SULFATE\IPRATROPIUM BROMIDE
  8. PULMICORT TURBUHALER [Concomitant]
     Active Substance: BUDESONIDE
  9. ZOFRAN [Concomitant]
     Active Substance: ONDANSETRON HYDROCHLORIDE
  10. SENOKOT [Concomitant]
     Active Substance: SENNOSIDES
  11. CABOMETYX [Suspect]
     Active Substance: CABOZANTINIB S-MALATE
     Indication: METASTASIS
  12. PERCOCET [Concomitant]
     Active Substance: ACETAMINOPHEN\OXYCODONE HYDROCHLORIDE
  13. MODULEN IBD [Concomitant]
     Active Substance: CARBOHYDRATES\FATTY ACIDS\MINERALS\PROTEIN\VITAMINS
  14. LOVENOX [Concomitant]
     Active Substance: ENOXAPARIN SODIUM
  15. CABOMETYX [Suspect]
     Active Substance: CABOZANTINIB S-MALATE
     Indication: BLADDER CANCER
     Dosage: 20 MG, QD
     Route: 048
  16. LINEZOLID. [Concomitant]
     Active Substance: LINEZOLID
  17. VITAMIN B COMPLEX [Concomitant]
     Active Substance: CYANOCOBALAMIN\DEXPANTHENOL\NIACINAMIDE\PYRIDOXINE HYDROCHLORIDE\RIBOFLAVIN 5^-PHOSPHATE SODIUM\THIAMINE HYDROCHLORIDE\VITAMIN B COMPLEX
  18. GABAPENTIN. [Concomitant]
     Active Substance: GABAPENTIN
  19. BENEPROTEIN [Concomitant]
     Active Substance: DIETARY SUPPLEMENT
  20. NYSTATIN. [Concomitant]
     Active Substance: NYSTATIN
  21. PROTEINEX [Concomitant]

REACTIONS (1)
  - Platelet count decreased [Unknown]

NARRATIVE: CASE EVENT DATE: 20180323
